FAERS Safety Report 4370904-7 (Version None)
Quarter: 2004Q2

REPORT INFORMATION
  Report Type: 
  Country: None (occurrence: None)
  Receive Date: 20040601
  Receipt Date: 20040510
  Transmission Date: 20050107
  Serious: Yes (Hospitalization)
  Sender: FDA-Public Use
  Company Number: ATO-04-0478

PATIENT
  Age: 61 Year
  Sex: Female

DRUGS (8)
  1. TRISENOX [Suspect]
     Indication: MULTIPLE MYELOMA
     Dosage: 14.7MG, QD) IVI
     Route: 042
     Dates: start: 20040504, end: 20040506
  2. MELPHALAN (MELPHALAN) [Suspect]
     Indication: MULTIPLE MYELOMA
     Dosage: 6 MG, QD, IVI
     Route: 042
     Dates: start: 20040504, end: 20040506
  3. ASCORBIC ACID [Suspect]
     Indication: MULTIPLE MYELOMA
     Dosage: 1 GM QD, IVI
     Route: 042
     Dates: start: 20040504, end: 20040506
  4. MAGNESIUM (MAGNESIUM) [Concomitant]
  5. POTASSIUM (POTASSIUM) [Concomitant]
  6. ZEBETA [Concomitant]
  7. LORAZEPAM [Concomitant]
  8. PREMARIN [Concomitant]

REACTIONS (7)
  - ACUTE RESPIRATORY DISTRESS SYNDROME [None]
  - CARDIAC ARREST [None]
  - CARDIAC FAILURE CONGESTIVE [None]
  - DYSPNOEA [None]
  - ELECTROCARDIOGRAM QT PROLONGED [None]
  - LOSS OF CONSCIOUSNESS [None]
  - VENTRICULAR TACHYCARDIA [None]
